FAERS Safety Report 23263952 (Version 4)
Quarter: 2024Q3

REPORT INFORMATION
  Report Type: Spontaneous
  Country: US (occurrence: US)
  Receive Date: 20231205
  Receipt Date: 20240917
  Transmission Date: 20241017
  Serious: No
  Sender: SANOFI AVENTIS
  Company Number: US-SA-SAC20231201000947

PATIENT
  Age: 46 Year
  Sex: Female
  Weight: 61.224 kg

DRUGS (12)
  1. DUPIXENT [Suspect]
     Active Substance: DUPILUMAB
     Indication: Dermatitis
     Dosage: 300 MG, QOW
     Route: 058
  2. DUPIXENT [Suspect]
     Active Substance: DUPILUMAB
     Indication: Dermatitis atopic
  3. RINVOQ [Concomitant]
     Active Substance: UPADACITINIB
     Dosage: UNK
  4. ALBUTEROL SULFATE [Concomitant]
     Active Substance: ALBUTEROL SULFATE
  5. ADVAIR HFA [Concomitant]
     Active Substance: FLUTICASONE PROPIONATE\SALMETEROL XINAFOATE
  6. OZEMPIC [Concomitant]
     Active Substance: SEMAGLUTIDE
  7. METHIMAZOLE [Concomitant]
     Active Substance: METHIMAZOLE
  8. BUSPIRONE HCL [Concomitant]
     Active Substance: BUSPIRONE HYDROCHLORIDE
  9. TRAZODONE HCL [Concomitant]
     Active Substance: TRAZODONE HYDROCHLORIDE
  10. OMEPRAZOLE [Concomitant]
     Active Substance: OMEPRAZOLE
  11. VITAMINS NOS [Concomitant]
     Active Substance: VITAMINS
  12. VITAMIN B12 [Concomitant]
     Active Substance: CYANOCOBALAMIN

REACTIONS (5)
  - Nausea [Not Recovered/Not Resolved]
  - Symptom recurrence [Unknown]
  - Rash [Unknown]
  - Drug ineffective [Unknown]
  - Product use in unapproved indication [Unknown]
